FAERS Safety Report 13280509 (Version 1)
Quarter: 2017Q1

REPORT INFORMATION
  Report Type: Spontaneous
  Country: US (occurrence: US)
  Receive Date: 20170301
  Receipt Date: 20170301
  Transmission Date: 20170428
  Serious: Yes (Hospitalization, Other)
  Sender: FDA-Public Use
  Company Number: US-ZYDUS-013963

PATIENT
  Age: 40 Year
  Sex: Female

DRUGS (7)
  1. BUSULFAN. [Suspect]
     Active Substance: BUSULFAN
     Indication: PRODUCT USED FOR UNKNOWN INDICATION
     Route: 042
  2. METHOTREXATE. [Suspect]
     Active Substance: METHOTREXATE
     Indication: PROPHYLAXIS
     Route: 065
  3. CYCLOPHOSPHAMIDE. [Suspect]
     Active Substance: CYCLOPHOSPHAMIDE
     Indication: LEUKAEMIA
     Route: 065
  4. ETOPOSIDE. [Suspect]
     Active Substance: ETOPOSIDE
     Indication: MEDIASTINAL MASS
     Route: 065
  5. CYCLOPHOSPHAMIDE. [Suspect]
     Active Substance: CYCLOPHOSPHAMIDE
     Indication: MEDIASTINAL MASS
     Route: 065
  6. TACROLIMUS. [Suspect]
     Active Substance: TACROLIMUS
     Indication: PROPHYLAXIS
     Route: 065
  7. FLUDARABINE [Suspect]
     Active Substance: FLUDARABINE PHOSPHATE
     Indication: PRODUCT USED FOR UNKNOWN INDICATION
     Route: 065

REACTIONS (13)
  - Chronic graft versus host disease [Recovering/Resolving]
  - Chronic graft versus host disease in liver [Recovering/Resolving]
  - Mediastinal mass [Recovered/Resolved]
  - Chimerism [Recovering/Resolving]
  - Leukocytosis [Recovering/Resolving]
  - Febrile neutropenia [Recovering/Resolving]
  - Non-alcoholic steatohepatitis [Recovering/Resolving]
  - Acute lymphocytic leukaemia recurrent [Recovering/Resolving]
  - Pulmonary haemorrhage [Recovering/Resolving]
  - Chronic graft versus host disease in skin [Recovering/Resolving]
  - Transaminases increased [Recovering/Resolving]
  - Neuropathy peripheral [Recovering/Resolving]
  - Drug-induced liver injury [Recovering/Resolving]
